FAERS Safety Report 8688328 (Version 2)
Quarter: 2013Q4

REPORT INFORMATION
  Report Type: Spontaneous
  Country: US (occurrence: US)
  Receive Date: 20120727
  Receipt Date: 20131031
  Transmission Date: 20140711
  Serious: No
  Sender: FDA-Public Use
  Company Number: US-009507513-2012SP023959

PATIENT
  Age: 34 Year
  Sex: Female
  Weight: 83.92 kg

DRUGS (6)
  1. CLARITIN [Suspect]
     Indication: SNEEZING
     Dosage: 10 MG, QD
     Route: 048
     Dates: start: 20120329, end: 20120403
  2. CLARITIN [Suspect]
     Indication: SEASONAL ALLERGY
  3. CLARITIN [Suspect]
     Indication: EYE PRURITUS
  4. CLARITIN [Suspect]
     Indication: LACRIMATION INCREASED
  5. CLARITIN [Suspect]
     Indication: RHINORRHOEA
  6. TRINESSA [Concomitant]
     Indication: ORAL CONTRACEPTION
     Dosage: UNK UNK, UNKNOWN

REACTIONS (1)
  - Drug effect decreased [Recovered/Resolved]
